FAERS Safety Report 4721610-8 (Version None)
Quarter: 2005Q3

REPORT INFORMATION
  Report Type: 
  Country: None (occurrence: None)
  Receive Date: 20050721
  Receipt Date: 20041229
  Transmission Date: 20060218
  Serious: No
  Sender: FDA-Public Use
  Company Number: US-BRISTOL-MYERS SQUIBB COMPANY-12809737

PATIENT
  Age: 50 Year
  Sex: Female

DRUGS (1)
  1. COUMADIN [Suspect]
     Indication: THROMBOPHLEBITIS
     Dosage: START 20 OR 24-SEP-2004 5 MG QD; INCREASED TO 5 MG QD X 3 DAYS + 7.5 MG X 4 DAYS
     Route: 048
     Dates: start: 20040901

REACTIONS (3)
  - BLOOD UREA NITROGEN/CREATININE RATIO INCREASED [None]
  - CONTUSION [None]
  - WHITE BLOOD CELL COUNT ABNORMAL [None]
